FAERS Safety Report 7223872-4 (Version None)
Quarter: 2011Q1

REPORT INFORMATION
  Report Type: 
  Country: None (occurrence: None)
  Receive Date: 20110112
  Receipt Date: 20110107
  Transmission Date: 20110831
  Serious: Yes (Life-Threatening, Hospitalization)
  Sender: FDA-Public Use
  Company Number: FR-AMGEN-FRASP2011001650

PATIENT

DRUGS (9)
  1. BI-PROFENID [Concomitant]
     Dosage: 1 DF, 1X/DAY
  2. LEVOTHYROX [Concomitant]
  3. TOPALGIC [Concomitant]
     Dosage: 50 MG, 2X/DAY
  4. ENBREL [Suspect]
     Dosage: UNK
     Dates: start: 20100901, end: 20101109
  5. COLCHICINE [Concomitant]
  6. SPECIAFOLDINE [Concomitant]
     Dosage: 3 DF, 1X/DAY
  7. CORTANCYL [Concomitant]
     Dosage: 5 MG, 1X/DAY
  8. ENBREL [Suspect]
     Indication: RHEUMATOID ARTHRITIS
     Dosage: UNK
     Dates: end: 20100401
  9. NOVATREX ^LEDERLE^ [Concomitant]
     Dosage: 4 DF, WEEKLY

REACTIONS (1)
  - PERICARDIAL EFFUSION [None]
